FAERS Safety Report 6005044-4 (Version None)
Quarter: 2008Q4

REPORT INFORMATION
  Report Type: 
  Country: None (occurrence: None)
  Receive Date: 20081216
  Receipt Date: 20081208
  Transmission Date: 20090506
  Serious: Yes (Hospitalization, Other)
  Sender: FDA-Public Use
  Company Number: PHHY2008FR31181

PATIENT
  Sex: Female

DRUGS (1)
  1. VOLTAREN [Suspect]
     Indication: BACK PAIN
     Dosage: UNK
     Dates: start: 20080929, end: 20081003

REACTIONS (11)
  - COLITIS ISCHAEMIC [None]
  - COLONOSCOPY [None]
  - CONTRACEPTIVE DEVICE COMPLICATION [None]
  - ENDOMETRIOSIS [None]
  - INTESTINAL ANASTOMOSIS [None]
  - LAPAROSCOPY [None]
  - MELAENA [None]
  - PYREXIA [None]
  - RECTAL HAEMORRHAGE [None]
  - RECTAL PERFORATION [None]
  - SIGMOIDECTOMY [None]
